FAERS Safety Report 5415630-8 (Version None)
Quarter: 2007Q3

REPORT INFORMATION
  Report Type: 
  Country: None (occurrence: None)
  Receive Date: 20070815
  Receipt Date: 20070809
  Transmission Date: 20080115
  Serious: Yes (Death)
  Sender: FDA-Public Use
  Company Number: US-JNJFOC-20061104942

PATIENT
  Sex: Male

DRUGS (17)
  1. DURAGESIC-100 [Suspect]
  2. DURAGESIC-100 [Suspect]
     Indication: PAIN
  3. NEURONTIN [Concomitant]
  4. ZOLOFT [Concomitant]
  5. ZOLOFT [Concomitant]
  6. CEPHALEXIN [Concomitant]
  7. CIPROFLOXACIN [Concomitant]
  8. WARFARIN SODIUM [Concomitant]
  9. FUROSEMIDE [Concomitant]
  10. IMIPRAMINE [Concomitant]
  11. BACLOFEN [Concomitant]
  12. PROTONIX [Concomitant]
  13. PROPRANOLOL [Concomitant]
  14. HYDROCODONE BITARTRATE [Concomitant]
  15. DOCUSATE SODIUM [Concomitant]
  16. BEXIN [Concomitant]
  17. AMBIEN [Concomitant]

REACTIONS (11)
  - ANXIETY [None]
  - CARDIO-RESPIRATORY ARREST [None]
  - CHEST PAIN [None]
  - CHEST X-RAY ABNORMAL [None]
  - DEVICE FAILURE [None]
  - DYSPNOEA [None]
  - INAPPROPRIATE SCHEDULE OF DRUG ADMINISTRATION [None]
  - MULTIPLE DRUG OVERDOSE [None]
  - PHARMACEUTICAL PRODUCT COMPLAINT [None]
  - SINUS TACHYCARDIA [None]
  - URINARY TRACT INFECTION [None]
